FAERS Safety Report 13826185 (Version 1)
Quarter: 2017Q3

REPORT INFORMATION
  Report Type: Spontaneous
  Country: FR (occurrence: FR)
  Receive Date: 20170802
  Receipt Date: 20170802
  Transmission Date: 20171127
  Serious: Yes (Other)
  Sender: FDA-Public Use
  Company Number: FR-GLAXOSMITHKLINE-FR2017GSK119456

PATIENT
  Age: 1 Year
  Sex: Female

DRUGS (2)
  1. FLIXOTIDE [Suspect]
     Active Substance: FLUTICASONE PROPIONATE
     Indication: BRONCHIOLITIS
     Dosage: UNK
  2. VENTOLINE [Suspect]
     Active Substance: ALBUTEROL
     Indication: BRONCHIOLITIS
     Dosage: UNK

REACTIONS (6)
  - Condition aggravated [Unknown]
  - Lacrimation increased [Unknown]
  - Nasal congestion [Unknown]
  - Off label use [Unknown]
  - Bronchiolitis [Unknown]
  - Product use in unapproved indication [Unknown]
